FAERS Safety Report 8446861-0 (Version None)
Quarter: 2012Q2

REPORT INFORMATION
  Report Type: 
  Country: None (occurrence: None)
  Receive Date: 20120612
  Receipt Date: 20120612
  Transmission Date: 20120825
  Serious: Yes (Hospitalization)
  Sender: FDA-Public Use
  Company Number: None

PATIENT
  Age: 63 Year
  Sex: Male
  Weight: 106.7 kg

DRUGS (1)
  1. TICAGRELOR (BRILINTA) [Suspect]
     Indication: ACUTE CORONARY SYNDROME
     Dosage: TICAGRELOR 90MG BID PO
     Route: 048
     Dates: start: 20120527, end: 20120529

REACTIONS (1)
  - DYSPNOEA [None]
